FAERS Safety Report 19748580 (Version 2)
Quarter: 2021Q3

REPORT INFORMATION
  Report Type: Spontaneous
  Country: GB (occurrence: GB)
  Receive Date: 20210826
  Receipt Date: 20210915
  Transmission Date: 20211014
  Serious: Yes (Other)
  Sender: FDA-Public Use
  Company Number: GB-AUROBINDO-AUR-APL-2021-035743

PATIENT
  Age: 31 Year
  Sex: Male
  Weight: 81 kg

DRUGS (2)
  1. METHYLPHENIDATE HYDROCHLORIDE. [Suspect]
     Active Substance: METHYLPHENIDATE HYDROCHLORIDE
     Indication: ATTENTION DEFICIT HYPERACTIVITY DISORDER
     Dosage: 60 ? 70 MG / DAY (LONG?RELEASE AND SHORT?RELEASE)
     Route: 048
     Dates: start: 20210514
  2. LOPERAMIDE [Suspect]
     Active Substance: LOPERAMIDE
     Indication: IRRITABLE BOWEL SYNDROME
     Dosage: 2 MILLIGRAM, ONCE A DAY
     Route: 048
     Dates: start: 20190101

REACTIONS (11)
  - Ear discomfort [Not Recovered/Not Resolved]
  - Chest pain [Not Recovered/Not Resolved]
  - Tinnitus [Not Recovered/Not Resolved]
  - Drug interaction [Not Recovered/Not Resolved]
  - Anxiety [Not Recovered/Not Resolved]
  - Rebound effect [Not Recovered/Not Resolved]
  - Hypertension [Not Recovered/Not Resolved]
  - Headache [Not Recovered/Not Resolved]
  - Off label use [Not Recovered/Not Resolved]
  - Heart rate increased [Not Recovered/Not Resolved]
  - Palpitations [Not Recovered/Not Resolved]

NARRATIVE: CASE EVENT DATE: 20210515
